FAERS Safety Report 6191714-4 (Version None)
Quarter: 2009Q2

REPORT INFORMATION
  Report Type: 
  Country: None (occurrence: None)
  Receive Date: 20090515
  Receipt Date: 20090514
  Transmission Date: 20091009
  Serious: Yes (Other)
  Sender: FDA-Public Use
  Company Number: US-BRISTOL-MYERS SQUIBB COMPANY-13135942

PATIENT
  Sex: Female

DRUGS (11)
  1. ESTRACE [Suspect]
     Indication: HORMONE REPLACEMENT THERAPY
  2. PREMARIN [Suspect]
     Indication: HORMONE REPLACEMENT THERAPY
  3. PROVERA [Suspect]
     Indication: HORMONE REPLACEMENT THERAPY
     Dosage: TO TAKE 10 DAYS EACH MONTH; REDUCED TO 5MG
  4. MEDROXYPROGESTERONE [Suspect]
     Indication: HORMONE REPLACEMENT THERAPY
  5. PREMPRO [Suspect]
     Indication: HORMONE REPLACEMENT THERAPY
  6. PREMPHASE 14/14 [Suspect]
     Indication: HORMONE REPLACEMENT THERAPY
     Dates: start: 19980401
  7. MICRONOR [Suspect]
     Indication: HORMONE REPLACEMENT THERAPY
  8. ESTRATAB [Suspect]
     Indication: HORMONE REPLACEMENT THERAPY
  9. PROMETRIUM [Suspect]
     Indication: HORMONE REPLACEMENT THERAPY
     Dates: start: 19990201
  10. COMBIPATCH [Suspect]
     Dosage: 1 DOSAGE FORM= 50/140 ALTERNATING EVERY 2 WEEKS WITH TRANSDERMAL ESTRADIOL
     Dates: start: 20000101
  11. ESCLIM [Suspect]
     Dates: start: 20000101

REACTIONS (1)
  - BREAST CANCER [None]
